FAERS Safety Report 24867830 (Version 1)
Quarter: 2025Q1

REPORT INFORMATION
  Report Type: Spontaneous
  Country: US (occurrence: None)
  Receive Date: 20250121
  Receipt Date: 20250121
  Transmission Date: 20250408
  Serious: Yes (Hospitalization)
  Sender: FDA-CTU
  Company Number: None

PATIENT
  Age: 51 Year
  Sex: Male
  Weight: 61.9 kg

DRUGS (3)
  1. FLUOROURACIL [Suspect]
     Active Substance: FLUOROURACIL
     Dates: end: 20241120
  2. LEUCOVORIN CALCIUM [Suspect]
     Active Substance: LEUCOVORIN CALCIUM
     Dates: end: 20241120
  3. ELOXATIN [Suspect]
     Active Substance: OXALIPLATIN
     Dates: end: 20241120

REACTIONS (5)
  - Hydronephrosis [None]
  - Acute kidney injury [None]
  - Nausea [None]
  - Vomiting [None]
  - Renal impairment [None]

NARRATIVE: CASE EVENT DATE: 20250110
